FAERS Safety Report 22121034 (Version 1)
Quarter: 2023Q1

REPORT INFORMATION
  Report Type: Spontaneous
  Country: CN (occurrence: CN)
  Receive Date: 20230321
  Receipt Date: 20230321
  Transmission Date: 20230417
  Serious: Yes (Other)
  Sender: FDA-Public Use
  Company Number: CN-PFIZER INC-PV202300050203

PATIENT
  Age: 7 Year
  Sex: Male
  Weight: 27.5 kg

DRUGS (3)
  1. METHOTREXATE SODIUM [Suspect]
     Active Substance: METHOTREXATE SODIUM
     Indication: Chemotherapy
     Dosage: 2 G, 1X/DAY
     Route: 041
     Dates: start: 20230221, end: 20230221
  2. METHOTREXATE SODIUM [Suspect]
     Active Substance: METHOTREXATE SODIUM
     Indication: Acute lymphocytic leukaemia
  3. LEUCOVORIN CALCIUM [Concomitant]
     Active Substance: LEUCOVORIN CALCIUM
     Indication: Prophylaxis
     Dosage: 15 MG, 4X/DAY

REACTIONS (3)
  - Leukoplakia oral [Recovering/Resolving]
  - Oral mucosal roughening [Recovering/Resolving]
  - Oral mucosal erythema [Recovering/Resolving]

NARRATIVE: CASE EVENT DATE: 20230224
